FAERS Safety Report 18823899 (Version 1)
Quarter: 2021Q1

REPORT INFORMATION
  Report Type: Spontaneous
  Country: DE (occurrence: DE)
  Receive Date: 20210201
  Receipt Date: 20210201
  Transmission Date: 20210419
  Serious: Yes (Hospitalization)
  Sender: FDA-Public Use
  Company Number: DE-BIOMARINAP-DE-2021-134495

PATIENT
  Age: 9 Year
  Sex: Female
  Weight: 20 kg

DRUGS (1)
  1. NAGLAZYME [Suspect]
     Active Substance: GALSULFASE
     Indication: MUCOPOLYSACCHARIDOSIS VI
     Dosage: 20 MILLIGRAM, QOW
     Route: 042
     Dates: start: 20190204

REACTIONS (2)
  - Ear tube insertion [Recovered/Resolved]
  - Paracentesis [Recovered/Resolved]

NARRATIVE: CASE EVENT DATE: 20210106
